FAERS Safety Report 7749731 (Version 6)
Quarter: 2013Q2

REPORT INFORMATION
  Report Type: Report from Study
  Country: US (occurrence: US)
  Receive Date: 20110106
  Receipt Date: 20130426
  Transmission Date: 20140414
  Serious: Yes (Other)
  Sender: FDA-Public Use
  Company Number: US-BIOGENIDEC-2010BI035168

PATIENT
  Age: 36 Year
  Sex: Female

DRUGS (4)
  1. TYSABRI [Suspect]
     Indication: MULTIPLE SCLEROSIS
     Route: 042
     Dates: start: 20091130, end: 20100716
  2. TYSABRI [Suspect]
     Indication: MULTIPLE SCLEROSIS
     Route: 042
     Dates: start: 20110214
  3. PROZAC [Concomitant]
     Dates: start: 20081113
  4. LANTUS [Concomitant]
     Dates: start: 20101222

REACTIONS (2)
  - Gestational diabetes [Recovered/Resolved]
  - Pregnancy [Recovered/Resolved]
